FAERS Safety Report 8427806-6 (Version None)
Quarter: 2012Q2

REPORT INFORMATION
  Report Type: 
  Country: None (occurrence: None)
  Receive Date: 20120611
  Receipt Date: 20120604
  Transmission Date: 20120825
  Serious: Yes (Other)
  Sender: FDA-Public Use
  Company Number: GB-PFIZER INC-2012134375

PATIENT
  Age: 69 Year
  Sex: Male

DRUGS (2)
  1. LATANOPROST [Suspect]
     Dosage: 0.005 %, 1X/DAY
     Route: 047
  2. RAPITIL [Concomitant]
     Dosage: 5 ML, 2X/DAY
     Route: 047
     Dates: start: 20111230

REACTIONS (4)
  - OCULAR HYPERAEMIA [None]
  - PRODUCT SUBSTITUTION ISSUE [None]
  - EYE PRURITUS [None]
  - EYE PAIN [None]
